FAERS Safety Report 20092436 (Version 2)
Quarter: 2021Q4

REPORT INFORMATION
  Report Type: Spontaneous
  Country: US (occurrence: US)
  Receive Date: 20211119
  Receipt Date: 20211130
  Transmission Date: 20220303
  Serious: No
  Sender: FDA-Public Use
  Company Number: US-PFIZER INC-202101308278

PATIENT
  Age: 61 Year
  Sex: Female
  Weight: 137.89 kg

DRUGS (1)
  1. SONATA [Suspect]
     Active Substance: ZALEPLON
     Indication: Sleep disorder
     Dosage: 10 MG, DAILY (AT NIGHT)
     Route: 048

REACTIONS (3)
  - Arthritis [Unknown]
  - Gait disturbance [Unknown]
  - Obesity [Unknown]
